FAERS Safety Report 5873726-0 (Version None)
Quarter: 2008Q3

REPORT INFORMATION
  Report Type: 
  Country: None (occurrence: None)
  Receive Date: 20080904
  Receipt Date: 20080904
  Transmission Date: 20090109
  Serious: Yes (Life-Threatening)
  Sender: FDA-Public Use
  Company Number: None

PATIENT
  Age: 71 Year
  Sex: Male

DRUGS (2)
  1. MORPHINE [Suspect]
     Indication: PAIN
     Dosage: 15 MG BID PO
     Route: 048
     Dates: start: 20080814, end: 20080816
  2. OXYCODONE HCL [Suspect]
     Indication: PAIN
     Dosage: 10 MG PRN PO
     Route: 048
     Dates: start: 20080805, end: 20080816

REACTIONS (4)
  - BLOOD CREATININE INCREASED [None]
  - CARDIO-RESPIRATORY ARREST [None]
  - SEPSIS [None]
  - UNRESPONSIVE TO STIMULI [None]
